FAERS Safety Report 4571698-2 (Version None)
Quarter: 2005Q1

REPORT INFORMATION
  Report Type: 
  Country: None (occurrence: None)
  Receive Date: 20050207
  Receipt Date: 20050105
  Transmission Date: 20050727
  Serious: Yes (Death, Hospitalization)
  Sender: FDA-Public Use
  Company Number: HU-ROCHE-391409

PATIENT
  Age: 62 Year
  Sex: Female

DRUGS (11)
  1. CELLCEPT [Suspect]
     Route: 048
     Dates: end: 20040902
  2. CELLCEPT [Suspect]
     Dosage: MMF HAD BEEN REDUCED AND TEMPORARILY DISCONTINUED DUE TO DIARRHOEA AND ANAEMIA SEVERAL TIMES THROUG+
     Route: 048
     Dates: start: 20011001
  3. CELLCEPT [Suspect]
     Route: 048
  4. CELLCEPT [Suspect]
     Route: 048
     Dates: start: 20020615, end: 20030615
  5. STEROID [Concomitant]
  6. CYCLOSPORINE [Concomitant]
  7. METHYLPREDNISOLONE [Concomitant]
  8. ENALAPRIL MALEATE [Concomitant]
  9. BETALOC ZOK [Concomitant]
  10. SANDIMMUNE [Concomitant]
  11. QUAMATEL [Concomitant]

REACTIONS (16)
  - ANAEMIA [None]
  - ASTHENIA [None]
  - BLOOD CULTURE POSITIVE [None]
  - BONE MARROW DEPRESSION [None]
  - CAMPYLOBACTER INTESTINAL INFECTION [None]
  - CARDIAC FAILURE [None]
  - COLITIS ULCERATIVE [None]
  - ENDOCARDITIS [None]
  - GASTROINTESTINAL HAEMORRHAGE [None]
  - HEART VALVE CALCIFICATION [None]
  - IATROGENIC INJURY [None]
  - NAUSEA [None]
  - PERITONITIS [None]
  - RENAL TUBULAR NECROSIS [None]
  - SERRATIA INFECTION [None]
  - THROMBOCYTOPENIA [None]
